FAERS Safety Report 15551218 (Version 1)
Quarter: 2018Q4

REPORT INFORMATION
  Report Type: Spontaneous
  Country: US (occurrence: US)
  Receive Date: 20181025
  Receipt Date: 20181025
  Transmission Date: 20190205
  Serious: Yes (Other)
  Sender: FDA-Public Use
  Company Number: None

PATIENT
  Age: 11 Year
  Sex: Male
  Weight: 72 kg

DRUGS (1)
  1. SINGULAIR [Suspect]
     Active Substance: MONTELUKAST SODIUM
     Indication: HYPERSENSITIVITY
     Dosage: ?          QUANTITY:1 CHEWABLE;?
     Route: 048

REACTIONS (15)
  - Muscle spasms [None]
  - Allergic reaction to excipient [None]
  - Hypersensitivity [None]
  - Nasal dryness [None]
  - Proteinuria [None]
  - Sleep talking [None]
  - Paraesthesia [None]
  - Weight increased [None]
  - Depressed mood [None]
  - Withdrawal syndrome [None]
  - Headache [None]
  - Increased appetite [None]
  - Pollakiuria [None]
  - Abnormal behaviour [None]
  - Pallor [None]

NARRATIVE: CASE EVENT DATE: 20180825
